FAERS Safety Report 20823681 (Version 1)
Quarter: 2022Q2

REPORT INFORMATION
  Report Type: Report from Study
  Country: CL (occurrence: CL)
  Receive Date: 20220513
  Receipt Date: 20220513
  Transmission Date: 20220720
  Serious: Yes (Life-Threatening, Other)
  Sender: FDA-Public Use
  Company Number: CL-JNJFOC-20220516464

PATIENT
  Sex: Female

DRUGS (2)
  1. REMICADE [Suspect]
     Active Substance: INFLIXIMAB
     Indication: Rheumatoid arthritis
     Route: 042
  2. REMICADE [Suspect]
     Active Substance: INFLIXIMAB
     Route: 042
     Dates: start: 202009, end: 202111

REACTIONS (5)
  - COVID-19 [Unknown]
  - Dependence on respirator [Unknown]
  - Rheumatoid arthritis [Unknown]
  - Wound [Unknown]
  - Vocal cord paralysis [Not Recovered/Not Resolved]
